FAERS Safety Report 7817195-X (Version None)
Quarter: 2011Q4

REPORT INFORMATION
  Report Type: 
  Country: None (occurrence: None)
  Receive Date: 20111017
  Receipt Date: 20111017
  Transmission Date: 20120403
  Serious: Yes (Other)
  Sender: FDA-Public Use
  Company Number: None

PATIENT
  Sex: Female
  Weight: 71.667 kg

DRUGS (1)
  1. ZENPEP [Suspect]
     Indication: PANCREATECTOMY
     Dosage: 2
     Route: 048
     Dates: start: 20110521, end: 20111016

REACTIONS (4)
  - ANAEMIA [None]
  - OEDEMA PERIPHERAL [None]
  - CONTUSION [None]
  - ARTHRALGIA [None]
